FAERS Safety Report 6357370-7 (Version None)
Quarter: 2009Q3

REPORT INFORMATION
  Report Type: 
  Country: None (occurrence: None)
  Receive Date: 20090916
  Receipt Date: 20090908
  Transmission Date: 20100115
  Serious: Yes (Other)
  Sender: FDA-Public Use
  Company Number: US-ASTRAZENECA-2009UW13297

PATIENT
  Age: 16911 Day
  Sex: Male
  Weight: 101.6 kg

DRUGS (9)
  1. SEROQUEL [Suspect]
     Indication: SCHIZOPHRENIA
     Route: 048
     Dates: start: 20030101
  2. SEROQUEL [Suspect]
     Indication: BIPOLAR DISORDER
     Route: 048
     Dates: start: 20030101
  3. SEROQUEL [Suspect]
     Indication: DEPRESSION
     Route: 048
     Dates: start: 20030101
  4. RISPERDAL [Concomitant]
     Indication: SCHIZOPHRENIA
     Dates: start: 19921113, end: 19971101
  5. RISPERDAL [Concomitant]
     Indication: BIPOLAR DISORDER
     Dates: start: 19921113, end: 19971101
  6. RISPERDAL [Concomitant]
     Indication: DEPRESSION
     Dates: start: 19921113, end: 19971101
  7. ZYPREXA [Concomitant]
     Indication: SCHIZOPHRENIA
     Dates: start: 20000101, end: 20030101
  8. ZYPREXA [Concomitant]
     Indication: BIPOLAR DISORDER
     Dates: start: 20000101, end: 20030101
  9. ZYPREXA [Concomitant]
     Indication: DEPRESSION
     Dates: start: 20000101, end: 20030101

REACTIONS (3)
  - DIABETIC COMA [None]
  - DIABETIC NEPHROPATHY [None]
  - TYPE 2 DIABETES MELLITUS [None]
